FAERS Safety Report 11881110 (Version 7)
Quarter: 2019Q1

REPORT INFORMATION
  Report Type: Report from Study
  Country: US (occurrence: US)
  Receive Date: 20151230
  Receipt Date: 20190306
  Transmission Date: 20190417
  Serious: Yes (Life-Threatening, Hospitalization, Disabling, Other)
  Sender: FDA-Public Use
  Company Number: US-SA-2015SA071968

PATIENT
  Age: 70 Year
  Sex: Female

DRUGS (2)
  1. ALEMTUZUMAB [Suspect]
     Active Substance: ALEMTUZUMAB
     Indication: MULTIPLE SCLEROSIS
     Dosage: 12 MG,QD
     Route: 041
     Dates: start: 20150504, end: 20150508
  2. XANAX [Concomitant]
     Active Substance: ALPRAZOLAM
     Dosage: UNK UNK,BID

REACTIONS (23)
  - Dyspnoea [Not Recovered/Not Resolved]
  - Chills [Recovering/Resolving]
  - Tremor [Recovering/Resolving]
  - Ill-defined disorder [Recovered/Resolved]
  - Pneumonia fungal [Recovered/Resolved]
  - Bronchitis [Recovering/Resolving]
  - Asthenia [Recovering/Resolving]
  - Multiple organ dysfunction syndrome [Recovered/Resolved]
  - Condition aggravated [Recovering/Resolving]
  - Gait disturbance [Recovering/Resolving]
  - Coma [Recovered/Resolved]
  - Muscular weakness [Not Recovered/Not Resolved]
  - Wheezing [Recovering/Resolving]
  - Cardiac operation [Recovered/Resolved]
  - Aphasia [Recovered/Resolved]
  - Pyrexia [Recovering/Resolving]
  - Insomnia [Unknown]
  - Contusion [Not Recovered/Not Resolved]
  - Rehabilitation therapy [Not Recovered/Not Resolved]
  - Pneumothorax [Not Recovered/Not Resolved]
  - Renal failure [Recovered/Resolved]
  - Respiratory disorder [Unknown]
  - Fatigue [Not Recovered/Not Resolved]

NARRATIVE: CASE EVENT DATE: 2015
